FAERS Safety Report 11934472 (Version 1)
Quarter: 2016Q1

REPORT INFORMATION
  Report Type: Spontaneous
  Country: GB (occurrence: GB)
  Receive Date: 20160121
  Receipt Date: 20160121
  Transmission Date: 20160526
  Serious: Yes (Life-Threatening, Other)
  Sender: FDA-Public Use
  Company Number: PHHY2016GB004105

PATIENT
  Age: 43 Year
  Sex: Female

DRUGS (1)
  1. QUETIAPINE SANDOZ [Suspect]
     Active Substance: QUETIAPINE
     Indication: SCHIZOPHRENIA
     Dosage: 50 MG, QID
     Route: 048
     Dates: start: 20150206, end: 20150210

REACTIONS (9)
  - Mental impairment [Recovered/Resolved]
  - Emotional distress [Recovered/Resolved]
  - Sleep disorder [Recovered/Resolved]
  - Repetitive speech [Recovered/Resolved]
  - Mental disorder [Recovered/Resolved]
  - Product substitution issue [Recovered/Resolved]
  - Depression [Recovered/Resolved]
  - Amnesia [Recovered/Resolved]
  - Headache [Recovered/Resolved]
